FAERS Safety Report 10921356 (Version 1)
Quarter: 2015Q1

REPORT INFORMATION
  Report Type: Spontaneous
  Country: US (occurrence: US)
  Receive Date: 20150317
  Receipt Date: 20150317
  Transmission Date: 20150721
  Serious: Yes (Hospitalization)
  Sender: FDA-Public Use
  Company Number: US-INCYTE CORPORATION-2015IN000957

PATIENT
  Age: 69 Year
  Sex: Female

DRUGS (11)
  1. AMBIEN [Concomitant]
     Active Substance: ZOLPIDEM TARTRATE
  2. IBUPROFEN. [Concomitant]
     Active Substance: IBUPROFEN
  3. ASPIRIN. [Concomitant]
     Active Substance: ASPIRIN
  4. HYDREA [Concomitant]
     Active Substance: HYDROXYUREA
  5. ULTRAM [Concomitant]
     Active Substance: TRAMADOL HYDROCHLORIDE
  6. JAKAFI [Suspect]
     Active Substance: RUXOLITINIB
     Dosage: 10 MG, QD
     Route: 048
     Dates: start: 20140711
  7. VICODIN [Concomitant]
     Active Substance: ACETAMINOPHEN\HYDROCODONE BITARTRATE
  8. JAKAFI [Suspect]
     Active Substance: RUXOLITINIB
     Dosage: 2X15 MG (30 MG) IN AM AND 1/2 10 MG IN EVENING
     Route: 048
  9. VITAMIN D                          /00107901/ [Concomitant]
     Active Substance: ERGOCALCIFEROL
  10. SYNTHROID [Concomitant]
     Active Substance: LEVOTHYROXINE SODIUM
  11. MORPHINE [Concomitant]
     Active Substance: MORPHINE

REACTIONS (2)
  - Spinal fracture [Unknown]
  - Wrong technique in drug usage process [Unknown]

NARRATIVE: CASE EVENT DATE: 20150306
